FAERS Safety Report 6323455-4 (Version None)
Quarter: 2009Q3

REPORT INFORMATION
  Report Type: 
  Country: None (occurrence: None)
  Receive Date: 20090824
  Receipt Date: 20090330
  Transmission Date: 20100115
  Serious: No
  Sender: FDA-Public Use
  Company Number: US-ABBOTT-09P-163-0564347-00

PATIENT
  Age: 62 Year
  Sex: Male

DRUGS (1)
  1. NIASPAN [Suspect]
     Indication: PERIPHERAL VASCULAR DISORDER

REACTIONS (2)
  - FLUSHING [None]
  - HYPERHIDROSIS [None]
